FAERS Safety Report 4962385-7 (Version None)
Quarter: 2006Q1

REPORT INFORMATION
  Report Type: 
  Country: None (occurrence: None)
  Receive Date: 20060201
  Receipt Date: 20051024
  Transmission Date: 20060701
  Serious: No
  Sender: FDA-Public Use
  Company Number: 2005PV004317

PATIENT
  Age: 35 Year
  Sex: Female
  Weight: 67.586 kg

DRUGS (10)
  1. BYETTA [Suspect]
     Indication: DIABETES MELLITUS NON-INSULIN-DEPENDENT
     Dosage: 5 MCG;BID;SC
     Route: 058
     Dates: start: 20051022, end: 20051024
  2. SYNTHROID [Concomitant]
  3. PREVACID [Concomitant]
  4. CYMBALTA [Concomitant]
  5. TOPAMAX [Concomitant]
  6. PHENERGAN ^WYETH AYERST^ [Concomitant]
  7. BONIVA [Concomitant]
  8. DURAGESIC-100 [Concomitant]
  9. CALCIUM CITRATE WITH VITAMIN D [Concomitant]
  10. HUMALOG 75/25 OR NOVOLOG 75/25 [Concomitant]

REACTIONS (6)
  - BLOOD GLUCOSE DECREASED [None]
  - BLOOD GLUCOSE INCREASED [None]
  - DEPRESSED LEVEL OF CONSCIOUSNESS [None]
  - FATIGUE [None]
  - MEMORY IMPAIRMENT [None]
  - SOMNOLENCE [None]
